FAERS Safety Report 5004769-7 (Version None)
Quarter: 2006Q2

REPORT INFORMATION
  Report Type: 
  Country: None (occurrence: None)
  Receive Date: 20060517
  Receipt Date: 20060512
  Transmission Date: 20061013
  Serious: Yes (Hospitalization)
  Sender: FDA-Public Use
  Company Number: DE-MERCK-0605DEU00132

PATIENT
  Sex: Female

DRUGS (1)
  1. VIOXX [Suspect]
     Route: 048
     Dates: start: 19990101

REACTIONS (3)
  - ATRIAL FIBRILLATION [None]
  - CORONARY ARTERY DISEASE [None]
  - TACHYARRHYTHMIA [None]
